FAERS Safety Report 5882897-1 (Version None)
Quarter: 2008Q3

REPORT INFORMATION
  Report Type: 
  Country: None (occurrence: None)
  Receive Date: 20080913
  Receipt Date: 20080821
  Transmission Date: 20090109
  Serious: No
  Sender: FDA-Public Use
  Company Number: US-ABBOTT-08P-163-0471877-00

PATIENT
  Sex: Female
  Weight: 55.842 kg

DRUGS (15)
  1. HUMIRA [Suspect]
     Indication: ANKYLOSING SPONDYLITIS
  2. HUMIRA [Suspect]
     Dates: start: 20080701
  3. GLATIRAMER ACETATE [Concomitant]
     Indication: MULTIPLE SCLEROSIS
     Route: 058
     Dates: start: 20080101
  4. TRAMADOL HCL [Concomitant]
     Indication: INFLAMMATION
     Route: 048
  5. HYDROXYCHLOROQUINE [Concomitant]
     Indication: INFLAMMATION
     Dosage: 2 TAB TWICE A DAY
  6. SALSALATE [Concomitant]
     Indication: INFLAMMATION
     Route: 048
  7. PREDNISONE TAB [Concomitant]
     Indication: INFLAMMATION
     Route: 048
  8. MODAFINIL [Concomitant]
     Indication: ASTHENIA
     Dosage: ONE TO TWO EVERY DAY
     Route: 050
  9. FOLIC ACID [Concomitant]
     Indication: DRUG USE FOR UNKNOWN INDICATION
     Route: 048
  10. LANSOPRAZOLE [Concomitant]
     Indication: DRUG USE FOR UNKNOWN INDICATION
     Route: 048
  11. METHOTREXATE [Concomitant]
     Indication: ANKYLOSING SPONDYLITIS
     Route: 050
  12. FENTANYL [Concomitant]
     Indication: PAIN
     Route: 062
  13. DIPHENHYDRAMINE HYDROCHLORIDE [Concomitant]
     Indication: INSOMNIA
     Dosage: AT BED TIME
     Route: 048
  14. HYDROCODONE BITARTRATE [Concomitant]
     Indication: PAIN
     Route: 048
  15. DULOXETINE HYDROCHLORIDE [Concomitant]
     Indication: DRUG USE FOR UNKNOWN INDICATION
     Route: 048

REACTIONS (4)
  - ARTHRALGIA [None]
  - INJECTION SITE HAEMATOMA [None]
  - INJECTION SITE PAIN [None]
  - MUSCULOSKELETAL PAIN [None]
